FAERS Safety Report 5711383-4 (Version None)
Quarter: 2008Q2

REPORT INFORMATION
  Report Type: 
  Country: None (occurrence: None)
  Receive Date: 20080418
  Receipt Date: 20080418
  Transmission Date: 20081010
  Serious: Yes (Hospitalization)
  Sender: FDA-Public Use
  Company Number: None

PATIENT
  Sex: Female
  Weight: 59.73 kg

DRUGS (6)
  1. CYCLOPHOSPHAMIDE [Suspect]
     Dosage: 1250 MG
  2. DOXORUBICIN HYDROCHLORIDE [Suspect]
     Dosage: 66 MG
  3. ETOPOSIDE [Suspect]
     Dosage: 332 MG
  4. PREDNISONE [Suspect]
     Dosage: 1000 MG
  5. RITUXIMAB (MOAB C2B8 ANTI CD20, CHIMERIC) [Suspect]
     Dosage: 620 MG
  6. VINCRISTINE SULFATE [Suspect]
     Dosage: 2 MG

REACTIONS (6)
  - CARDIAC FAILURE CONGESTIVE [None]
  - CHILLS [None]
  - EJECTION FRACTION DECREASED [None]
  - FATIGUE [None]
  - NEUTROPENIA [None]
  - TREMOR [None]
